FAERS Safety Report 9124513 (Version 2)
Quarter: 2013Q3

REPORT INFORMATION
  Report Type: Spontaneous
  Country: US (occurrence: US)
  Receive Date: 20130227
  Receipt Date: 20130717
  Transmission Date: 20140515
  Serious: Yes (Hospitalization)
  Sender: FDA-Public Use
  Company Number: US-ASTRAZENECA-2013SE11251

PATIENT
  Age: 72 Year
  Sex: Male
  Weight: 63 kg

DRUGS (8)
  1. NEXIUM [Suspect]
     Indication: GASTROOESOPHAGEAL REFLUX DISEASE
     Route: 048
     Dates: start: 20130201
  2. ADVAIR [Concomitant]
     Indication: CHRONIC OBSTRUCTIVE PULMONARY DISEASE
     Dosage: 250/50
  3. SPIRIVA [Concomitant]
     Indication: CHRONIC OBSTRUCTIVE PULMONARY DISEASE
     Dosage: UNKNOWN
  4. ALBUTEROL [Concomitant]
     Indication: ASTHMA
     Dosage: DAILY
  5. SERTALIN [Concomitant]
     Indication: DEPRESSION
  6. SIMVASTATIN [Concomitant]
     Indication: BLOOD CHOLESTEROL ABNORMAL
  7. WELLCOL [Concomitant]
     Indication: DIARRHOEA
     Dosage: DAILY
  8. ZANEX [Concomitant]
     Indication: ANXIETY
     Dosage: 0.5 DAILY

REACTIONS (5)
  - Cerebrovascular accident [Recovered/Resolved with Sequelae]
  - Abdominal discomfort [Recovering/Resolving]
  - Diarrhoea [Unknown]
  - Constipation [Unknown]
  - Intentional drug misuse [Unknown]
